FAERS Safety Report 8404688-X (Version None)
Quarter: 2012Q2

REPORT INFORMATION
  Report Type: 
  Country: None (occurrence: None)
  Receive Date: 20120601
  Receipt Date: 20120528
  Transmission Date: 20120825
  Serious: Yes (Hospitalization)
  Sender: FDA-Public Use
  Company Number: GB-ROCHE-1039392

PATIENT
  Sex: Female
  Weight: 77 kg

DRUGS (17)
  1. NITROGLYCERIN [Concomitant]
     Route: 060
  2. MABTHERA [Suspect]
     Indication: RHEUMATOID ARTHRITIS
     Dosage: LAST DOSE PRIOR TO SAE: 23/AUG/2011
     Route: 065
     Dates: start: 20110809
  3. LANSOPRAZOLE [Concomitant]
     Route: 048
  4. FLUTICASONE PROPIONATE/SALMETEROL [Concomitant]
     Route: 055
  5. SIMVASTATIN [Concomitant]
     Route: 048
  6. CLOPIDOGREL [Concomitant]
     Route: 048
  7. CALCICHEW D3 [Concomitant]
     Route: 048
  8. ACETAMINOPHEN [Concomitant]
     Route: 048
  9. METHOTREXATE [Concomitant]
     Dates: start: 20110923
  10. FERROUS SULFATE TAB [Concomitant]
     Route: 048
  11. FOLIC ACID [Concomitant]
     Route: 048
  12. HUMULIN M3 [Concomitant]
     Route: 058
  13. METFORMIN HCL [Concomitant]
     Route: 048
  14. ALENDRONATE SODIUM [Concomitant]
     Route: 048
  15. ASPIRIN [Concomitant]
     Route: 048
  16. PERINDOPRIL ERBUMINE [Concomitant]
     Route: 048
  17. ALBUTEROL [Concomitant]

REACTIONS (2)
  - AORTIC STENOSIS [None]
  - MITRAL VALVE INCOMPETENCE [None]
